FAERS Safety Report 6694314-2 (Version None)
Quarter: 2010Q2

REPORT INFORMATION
  Report Type: 
  Country: None (occurrence: None)
  Receive Date: 20100423
  Receipt Date: 20100414
  Transmission Date: 20101027
  Serious: Yes (Hospitalization, Other)
  Sender: FDA-Public Use
  Company Number: MX-PFIZER INC-2009226752

PATIENT
  Age: 59 Year
  Sex: Male
  Weight: 86 kg

DRUGS (7)
  1. IRINOTECAN HCL [Suspect]
     Indication: COLORECTAL CANCER
     Dosage: 220 MG, EVERY 2 WEEKS
     Route: 042
     Dates: start: 20080212, end: 20090508
  2. FLUOROURACIL [Suspect]
     Indication: COLORECTAL CANCER
     Dosage: 480 MG, EVERY TWO WEEKS
     Route: 040
     Dates: start: 20080212, end: 20090508
  3. FLUOROURACIL [Suspect]
     Dosage: 2900 MG, EVERY TWO WEEKS
     Dates: start: 20080212, end: 20090510
  4. CALCIUM FOLINATE [Suspect]
     Indication: COLORECTAL CANCER
     Dosage: 250 MG, EVERY TWO WEEKS
     Route: 042
     Dates: start: 20080212, end: 20090508
  5. SUNITINIB MALATE [Suspect]
     Indication: COLORECTAL CANCER
     Dosage: 25 MG, 1X/DAY
     Route: 048
     Dates: start: 20080212, end: 20100126
  6. CEFUROXIME [Concomitant]
     Indication: STAPHYLOCOCCAL INFECTION
     Dosage: 500 MG, 3/D
     Dates: start: 20090523, end: 20090604
  7. DIAZEPAM [Concomitant]
     Indication: ANXIETY
     Dosage: 5 MG, 1/D
     Dates: start: 20090607, end: 20090609

REACTIONS (1)
  - ORCHITIS [None]
